FAERS Safety Report 8440498 (Version 3)
Quarter: 2022Q1

REPORT INFORMATION
  Report Type: Report from Study
  Country: CA (occurrence: CA)
  Receive Date: 20120305
  Receipt Date: 20220106
  Transmission Date: 20220423
  Serious: Yes (Death, Hospitalization)
  Sender: FDA-Public Use
  Company Number: PHHY2012CA017668

PATIENT
  Age: 85 Year
  Sex: Female

DRUGS (1)
  1. EXJADE [Suspect]
     Active Substance: DEFERASIROX
     Indication: Plasma cell myeloma
     Dosage: 375 MG, UNK
     Route: 048
     Dates: end: 20120228

REACTIONS (2)
  - Death [Fatal]
  - Dehydration [Unknown]

NARRATIVE: CASE EVENT DATE: 20120228
